FAERS Safety Report 9911551 (Version 1)
Quarter: 2014Q1

REPORT INFORMATION
  Report Type: Spontaneous
  Country: NL (occurrence: NL)
  Receive Date: 20140219
  Receipt Date: 20140219
  Transmission Date: 20141002
  Serious: Yes (Death, Hospitalization, Other)
  Sender: FDA-Public Use
  Company Number: PHHY2014NL018804

PATIENT
  Sex: Female

DRUGS (6)
  1. EXELON [Suspect]
     Indication: MULTIPLE SYSTEM ATROPHY
     Dosage: UNK UKN, UNK
     Dates: start: 199910
  2. EXELON [Suspect]
     Indication: DEMENTIA ALZHEIMER^S TYPE
  3. EXELON [Suspect]
     Indication: DEMENTIA
  4. MADOPAR [Concomitant]
     Dosage: UNK UKN, TID
     Dates: start: 199608
  5. AURORIX [Concomitant]
     Dosage: UNK UKN, QID
     Dates: start: 199702
  6. XANAX [Concomitant]
     Dosage: UNK UKN, QID
     Route: 065

REACTIONS (24)
  - Completed suicide [Fatal]
  - Motor dysfunction [Unknown]
  - Cognitive disorder [Unknown]
  - Affective disorder [Unknown]
  - General physical condition abnormal [Unknown]
  - Anxiety [Unknown]
  - Suicidal ideation [Unknown]
  - Speech disorder [Unknown]
  - Sluggishness [Unknown]
  - Apathy [Unknown]
  - Hyperreflexia [Unknown]
  - Myopathy [Unknown]
  - Muscle contractions involuntary [Unknown]
  - Drug prescribing error [Unknown]
  - Hepatic enzyme increased [Unknown]
  - Hallucination, auditory [Unknown]
  - Anxiety disorder [Unknown]
  - Hallucination, visual [Unknown]
  - Restlessness [Unknown]
  - Confusional state [Unknown]
  - Asthenia [Unknown]
  - Fatigue [Unknown]
  - Depression [Unknown]
  - Memory impairment [Unknown]
